FAERS Safety Report 6010624-6 (Version None)
Quarter: 2008Q4

REPORT INFORMATION
  Report Type: 
  Country: None (occurrence: None)
  Receive Date: 20081218
  Receipt Date: 20080303
  Transmission Date: 20090506
  Serious: No
  Sender: FDA-Public Use
  Company Number: US-AMGEN-KDL257030

PATIENT
  Sex: Female

DRUGS (1)
  1. ENBREL [Suspect]
     Indication: PSORIASIS
     Route: 058
     Dates: start: 20040201

REACTIONS (6)
  - GALLBLADDER OPERATION [None]
  - GASTROINTESTINAL DISORDER [None]
  - INJECTION SITE PAIN [None]
  - PSORIASIS [None]
  - STAPHYLOCOCCAL INFECTION [None]
  - VAGINAL LESION [None]
